FAERS Safety Report 6615780-4 (Version None)
Quarter: 2010Q1

REPORT INFORMATION
  Report Type: 
  Country: None (occurrence: None)
  Receive Date: 20100305
  Receipt Date: 20100223
  Transmission Date: 20100710
  Serious: Yes (Other)
  Sender: FDA-Public Use
  Company Number: US-AMGEN-QUU394842

PATIENT
  Sex: Female

DRUGS (3)
  1. ENBREL [Suspect]
     Indication: RHEUMATOID ARTHRITIS
     Route: 058
  2. IMURAN [Concomitant]
  3. REMICADE [Concomitant]

REACTIONS (5)
  - ARTHRITIS [None]
  - COUGH [None]
  - FOOT OPERATION [None]
  - HYPERSENSITIVITY [None]
  - RASH [None]
